FAERS Safety Report 5664270-4 (Version None)
Quarter: 2008Q1

REPORT INFORMATION
  Report Type: 
  Country: None (occurrence: None)
  Receive Date: 20080314
  Receipt Date: 20080310
  Transmission Date: 20080703
  Serious: Yes (Hospitalization, Other)
  Sender: FDA-Public Use
  Company Number: DE-AVENTIS-200810716DE

PATIENT
  Age: 46 Year
  Sex: Female
  Weight: 66 kg

DRUGS (2)
  1. TAXOTERE [Suspect]
     Indication: BREAST CANCER
     Route: 042
     Dates: start: 20080303, end: 20080303
  2. DEXAMETHASONE [Concomitant]
     Dosage: DOSE: IV/ORAL

REACTIONS (2)
  - ACUTE PSYCHOSIS [None]
  - RETROGRADE AMNESIA [None]
